FAERS Safety Report 17812031 (Version 1)
Quarter: 2020Q2

REPORT INFORMATION
  Report Type: Spontaneous
  Country: FR (occurrence: FR)
  Receive Date: 20200521
  Receipt Date: 20200521
  Transmission Date: 20200714
  Serious: Yes (Other)
  Sender: FDA-Public Use
  Company Number: FR-PFIZER INC-2020199129

PATIENT
  Age: 77 Year
  Sex: Female

DRUGS (5)
  1. ZOLOFT [Suspect]
     Active Substance: SERTRALINE HYDROCHLORIDE
     Dosage: 1 DF, ALTERNATE DAY
  2. TEMESTA [LORAZEPAM] [Concomitant]
     Active Substance: LORAZEPAM
  3. LYRICA [Suspect]
     Active Substance: PREGABALIN
     Indication: GENERALISED ANXIETY DISORDER
     Dosage: UNK
     Dates: start: 2017
  4. ZOLOFT [Suspect]
     Active Substance: SERTRALINE HYDROCHLORIDE
     Indication: DEPRESSION
     Dosage: UNK
     Dates: start: 2017
  5. LYRICA [Suspect]
     Active Substance: PREGABALIN
     Dosage: 25 MG, 2X/DAY

REACTIONS (7)
  - Drug withdrawal syndrome [Unknown]
  - Arrhythmia [Unknown]
  - Palpitations [Unknown]
  - Visual impairment [Recovering/Resolving]
  - Malaise [Unknown]
  - Headache [Unknown]
  - Extrasystoles [Unknown]

NARRATIVE: CASE EVENT DATE: 2019
